FAERS Safety Report 10972979 (Version 2)
Quarter: 2015Q2

REPORT INFORMATION
  Report Type: Spontaneous
  Country: US (occurrence: US)
  Receive Date: 20150331
  Receipt Date: 20150525
  Transmission Date: 20150821
  Serious: Yes (Other)
  Sender: FDA-Public Use
  Company Number: US-JNJFOC-20121201273

PATIENT
  Age: 75 Year
  Sex: Male
  Weight: 61.24 kg

DRUGS (1)
  1. RISPERIDONE. [Suspect]
     Active Substance: RISPERIDONE
     Indication: DEPRESSION
     Route: 048
     Dates: start: 2012, end: 2012

REACTIONS (3)
  - Fall [Unknown]
  - Orthostatic hypotension [Unknown]
  - Off label use [Unknown]

NARRATIVE: CASE EVENT DATE: 2012
